FAERS Safety Report 8005326-0 (Version None)
Quarter: 2011Q4

REPORT INFORMATION
  Report Type: 
  Country: None (occurrence: None)
  Receive Date: 20111223
  Receipt Date: 20111219
  Transmission Date: 20120403
  Serious: Yes (Hospitalization, Disabling)
  Sender: FDA-Public Use
  Company Number: US-ROXANE LABORATORIES, INC.-2011-RO-01838RO

PATIENT
  Sex: Male

DRUGS (8)
  1. DEXAMETHASONE SODIUM PHOSPHATE [Suspect]
     Indication: BRAIN OEDEMA
     Route: 042
     Dates: start: 20080101, end: 20110401
  2. METHADONE HCL [Concomitant]
     Indication: ARTHRALGIA
  3. LISINOPRIL [Concomitant]
  4. DEXAMETHASONE TABLETS USP, 1.5 MG [Suspect]
     Indication: BRAIN OEDEMA
     Route: 048
     Dates: start: 20080101, end: 20110401
  5. LAMICTAL [Concomitant]
  6. METHADONE HCL [Concomitant]
     Indication: MYALGIA
     Dosage: 15 MG
     Route: 048
  7. PENTOXIFYLLINE CR [Concomitant]
  8. VITAMIN TAB [Concomitant]

REACTIONS (8)
  - MOOD SWINGS [None]
  - GENERALISED OEDEMA [None]
  - MYALGIA [None]
  - ARTHRALGIA [None]
  - INCREASED APPETITE [None]
  - WEIGHT DECREASED [None]
  - WEIGHT INCREASED [None]
  - FATIGUE [None]
